FAERS Safety Report 20533445 (Version 1)
Quarter: 2022Q1

REPORT INFORMATION
  Report Type: Report from Study
  Country: US (occurrence: US)
  Receive Date: 20220301
  Receipt Date: 20220301
  Transmission Date: 20220423
  Serious: No
  Sender: FDA-Public Use
  Company Number: US-MIRM-000211

PATIENT
  Sex: Female
  Weight: 8.618 kg

DRUGS (9)
  1. LIVMARLI [Suspect]
     Active Substance: MARALIXIBAT CHLORIDE
     Indication: Alagille syndrome
     Route: 048
     Dates: start: 202106
  2. 1683741 (GLOBALC3Sep19): Nexium [Concomitant]
     Indication: Product used for unknown indication
     Route: 048
  3. 4279822 (GLOBALC3Sep19): Clobazam [Concomitant]
     Indication: Product used for unknown indication
     Route: 048
  4. 1610929 (GLOBALC3Sep19): Levetiracetam [Concomitant]
     Indication: Product used for unknown indication
     Route: 048
  5. 1324567 (GLOBALC3Sep19): Famotidine [Concomitant]
     Indication: Product used for unknown indication
     Route: 048
  6. 1328777 (GLOBALC3Sep19): Ursodiol [Concomitant]
     Indication: Product used for unknown indication
     Route: 048
  7. 1328139 (GLOBALC3Sep19): Rifampin [Concomitant]
     Indication: Product used for unknown indication
     Route: 048
  8. 3118011 (GLOBALC3Sep19): Naltrexone [Concomitant]
     Indication: Product used for unknown indication
     Route: 048
  9. 2930039 (GLOBALC3Sep19): Hydroxyzine [Concomitant]
     Indication: Product used for unknown indication
     Dosage: TIME INTERVAL: AS NECESSARY
     Route: 048

REACTIONS (1)
  - Vomiting [None]
